FAERS Safety Report 4877022-X (Version None)
Quarter: 2005Q4

REPORT INFORMATION
  Report Type: 
  Country: None (occurrence: None)
  Receive Date: 20051206
  Receipt Date: 20051019
  Transmission Date: 20060501
  Serious: No
  Sender: FDA-Public Use
  Company Number: USA0508105287

PATIENT
  Age: 65 Year
  Sex: Female

DRUGS (2)
  1. CYMBALTA [Suspect]
     Dosage: 60 MG
     Dates: start: 20050601, end: 20050701
  2. ZOCOR [Concomitant]

REACTIONS (3)
  - EXTRASYSTOLES [None]
  - INSOMNIA [None]
  - TACHYCARDIA [None]
